FAERS Safety Report 6620885-8 (Version None)
Quarter: 2010Q1

REPORT INFORMATION
  Report Type: 
  Country: None (occurrence: None)
  Receive Date: 20100309
  Receipt Date: 20100304
  Transmission Date: 20100710
  Serious: Yes (Other)
  Sender: FDA-Public Use
  Company Number: FR-ABBOTT-10P-056-0630395-00

PATIENT
  Age: 22 Year
  Sex: Female

DRUGS (2)
  1. DEPAKENE [Suspect]
     Indication: EPILEPSY
     Route: 048
     Dates: start: 20030101
  2. DEPAKENE [Suspect]

REACTIONS (2)
  - DRUG WITHDRAWAL CONVULSIONS [None]
  - EPILEPSY [None]
